FAERS Safety Report 4577558-5 (Version None)
Quarter: 2005Q1

REPORT INFORMATION
  Report Type: 
  Country: None (occurrence: None)
  Receive Date: 20050208
  Receipt Date: 20050201
  Transmission Date: 20050727
  Serious: Yes (Hospitalization, Disabling)
  Sender: FDA-Public Use
  Company Number: 2004AP01943

PATIENT
  Age: 62 Year
  Sex: Female
  Weight: 62 kg

DRUGS (14)
  1. IRESSA [Suspect]
     Indication: NON-SMALL CELL LUNG CANCER
     Dosage: 250 MG DIALY PO
     Route: 048
     Dates: start: 20020611, end: 20021017
  2. IRESSA [Suspect]
     Indication: NON-SMALL CELL LUNG CANCER
     Dosage: 250 MG DAILY PO
     Route: 048
     Dates: start: 20021225, end: 20040220
  3. IRESSA [Suspect]
     Indication: NON-SMALL CELL LUNG CANCER
     Dosage: 250 MG DAILY PO
     Route: 048
     Dates: start: 20040227, end: 20040317
  4. IRESSA [Suspect]
     Indication: NON-SMALL CELL LUNG CANCER
     Dosage: 250 MG DAILY PO
     Route: 048
     Dates: start: 20040407, end: 20040416
  5. IRESSA [Suspect]
     Indication: NON-SMALL CELL LUNG CANCER
     Dosage: 250 MG DAILY PO
     Route: 048
     Dates: start: 20040420, end: 20040601
  6. IRESSA [Suspect]
     Indication: NON-SMALL CELL LUNG CANCER
     Dosage: 250 MG DAILY PO
     Route: 048
     Dates: start: 20040723
  7. MGO [Concomitant]
  8. CELEBREX [Concomitant]
  9. GEMCITABINE [Concomitant]
  10. CISPLATIN [Concomitant]
  11. PACLITAXEL [Concomitant]
  12. RADIOTHERAPY [Concomitant]
  13. PRIMPERAN TAB [Concomitant]
  14. STILNOX [Concomitant]

REACTIONS (40)
  - ARACHNOID CYST [None]
  - ASTHENIA [None]
  - BONE MARROW DISORDER [None]
  - BRADYCARDIA [None]
  - CEREBROSPINAL FLUID LEAKAGE [None]
  - CHOKING [None]
  - CRANIAL NERVE DISORDER [None]
  - CULTURE URINE POSITIVE [None]
  - CYST [None]
  - DEEP VEIN THROMBOSIS [None]
  - DEPRESSED LEVEL OF CONSCIOUSNESS [None]
  - DISORIENTATION [None]
  - DRY EYE [None]
  - DYSARTHRIA [None]
  - DYSPHAGIA [None]
  - DYSPHONIA [None]
  - ENTEROBACTER INFECTION [None]
  - ESCHERICHIA INFECTION [None]
  - GAMMOPATHY [None]
  - HEADACHE [None]
  - HYPERTENSION [None]
  - IMMUNE SYSTEM DISORDER [None]
  - IMPAIRED HEALING [None]
  - INJECTION SITE HAEMORRHAGE [None]
  - INTRACRANIAL PRESSURE INCREASED [None]
  - MEMORY IMPAIRMENT [None]
  - METASTASES TO CENTRAL NERVOUS SYSTEM [None]
  - METASTASES TO MENINGES [None]
  - MYELITIS TRANSVERSE [None]
  - PARAPLEGIA [None]
  - POST PROCEDURAL COMPLICATION [None]
  - RADIATION INJURY [None]
  - SENSORY LOSS [None]
  - SOMNOLENCE [None]
  - SPINAL CORD INFARCTION [None]
  - SPINAL LAMINECTOMY [None]
  - TACHYCARDIA [None]
  - URINARY INCONTINENCE [None]
  - URINARY TRACT INFECTION [None]
  - VOMITING [None]
